FAERS Safety Report 5749582-8 (Version None)
Quarter: 2008Q2

REPORT INFORMATION
  Report Type: 
  Country: None (occurrence: None)
  Receive Date: 20080527
  Receipt Date: 20080521
  Transmission Date: 20081010
  Serious: Yes (Hospitalization)
  Sender: FDA-Public Use
  Company Number: JP-ASTRAZENECA-2008AP03549

PATIENT
  Age: 54 Year
  Sex: Female
  Weight: 79 kg

DRUGS (6)
  1. CRESTOR [Suspect]
     Indication: LIPIDS ABNORMAL
     Route: 048
     Dates: start: 20061206, end: 20080418
  2. LANDEL10_20 [Concomitant]
     Indication: HYPERTENSION
     Route: 048
     Dates: start: 20061018
  3. LASIX [Concomitant]
     Indication: OEDEMA
     Route: 048
     Dates: start: 20061128
  4. OLMETEC [Concomitant]
     Indication: HYPERTENSION
     Route: 048
     Dates: start: 20061129
  5. ADALAT [Concomitant]
     Indication: HYPERTENSION
     Route: 048
     Dates: start: 20061220
  6. KREMEZIN [Concomitant]
     Indication: RENAL IMPAIRMENT
     Route: 048
     Dates: start: 20070802

REACTIONS (4)
  - BLOOD CREATINE PHOSPHOKINASE INCREASED [None]
  - BLOOD PRESSURE INCREASED [None]
  - OEDEMA [None]
  - RENAL FAILURE ACUTE [None]
